FAERS Safety Report 6488664-2 (Version None)
Quarter: 2009Q4

REPORT INFORMATION
  Report Type: 
  Country: None (occurrence: None)
  Receive Date: 20091210
  Receipt Date: 20091130
  Transmission Date: 20100525
  Serious: Yes (Hospitalization)
  Sender: FDA-Public Use
  Company Number: FR-PFIZER INC-2009297219

PATIENT
  Age: 53 Year
  Sex: Male

DRUGS (11)
  1. CAMPTOSAR [Suspect]
     Indication: ANAL CANCER
     Dosage: 300 MG, CYCLIC
     Route: 042
     Dates: start: 20081009
  2. ERBITUX [Suspect]
     Indication: ANAL CANCER
     Dosage: 5120 MG, CYCLIC
     Route: 042
     Dates: start: 20081009
  3. FLUOROURACIL [Suspect]
     Indication: ANAL CANCER
     Dosage: 915 MG, CYCLIC
     Route: 042
     Dates: start: 20081009
  4. TOPALGIC [Concomitant]
     Dosage: 150 MG, UNK
  5. ORACILLIN [Concomitant]
  6. BACTRIM [Concomitant]
  7. ZELITREX [Concomitant]
  8. ATARAX [Concomitant]
  9. TETRAZEPAM [Concomitant]
  10. DUPHALAC [Concomitant]
  11. CALCIUM FOLINATE [Concomitant]

REACTIONS (5)
  - ANAEMIA MACROCYTIC [None]
  - APLASIA [None]
  - DIARRHOEA [None]
  - FEBRILE NEUTROPENIA [None]
  - VOMITING [None]
